FAERS Safety Report 16991039 (Version 1)
Quarter: 2019Q4

REPORT INFORMATION
  Report Type: Spontaneous
  Country: US (occurrence: US)
  Receive Date: 20191104
  Receipt Date: 20191104
  Transmission Date: 20200122
  Serious: Yes (Hospitalization, Other)
  Sender: FDA-Public Use
  Company Number: US-AMGEN-USASP2019179302

PATIENT
  Age: 56 Year
  Sex: Male
  Weight: 67.12 kg

DRUGS (11)
  1. TRASTUZUMAB. [Suspect]
     Active Substance: TRASTUZUMAB
     Indication: NEOPLASM
     Dosage: UNK
     Route: 065
     Dates: start: 201810, end: 20190520
  2. ASCORBIC ACID. [Concomitant]
     Active Substance: ASCORBIC ACID
     Dosage: 1000 MILLIGRAM, QD
     Dates: start: 201905
  3. VIGRAN [Concomitant]
     Active Substance: VITAMINS
     Dosage: 1 DOSAGE FORM, QD
     Route: 048
     Dates: start: 201905
  4. ALLOPURINOL. [Concomitant]
     Active Substance: ALLOPURINOL
     Indication: NEOPLASM
     Dosage: 300 MILLIGRAM, QD
     Dates: start: 2015
  5. ABT 165 [Suspect]
     Active Substance: INVESTIGATIONAL PRODUCT
     Indication: NEOPLASM
     Dosage: 168.8 MILLIGRAM
     Route: 042
     Dates: start: 20190826
  6. VICODIN [Concomitant]
     Active Substance: ACETAMINOPHEN\HYDROCODONE BITARTRATE
     Indication: ABDOMINAL PAIN
     Dosage: 7.5 MILLIGRAM, AS NECESSARY
     Route: 048
  7. PACLITAXEL. [Suspect]
     Active Substance: PACLITAXEL
     Indication: NEOPLASM
     Dosage: 147.2 MILLIGRAM, QWK
     Route: 042
     Dates: start: 20190826
  8. OXALIPLATIN. [Concomitant]
     Active Substance: OXALIPLATIN
     Indication: NEOPLASM
     Dosage: UNK
     Dates: start: 201810, end: 20190520
  9. ABBV 181 [Suspect]
     Active Substance: BUDIGALIMAB
     Indication: NEOPLASM
     Dosage: 500 MILLIGRAM
     Route: 042
     Dates: start: 20190826
  10. CAPECITABINE. [Concomitant]
     Active Substance: CAPECITABINE
     Dosage: UNK
     Dates: start: 201906, end: 20190729
  11. CAPECITABINE. [Concomitant]
     Active Substance: CAPECITABINE
     Indication: NEOPLASM
     Dosage: UNK
     Dates: start: 201810, end: 20190520

REACTIONS (8)
  - Constipation [Unknown]
  - Nausea [Unknown]
  - Febrile neutropenia [Not Recovered/Not Resolved]
  - Gastrooesophageal reflux disease [Unknown]
  - Hyperlipidaemia [Unknown]
  - Diarrhoea [Unknown]
  - Vomiting [Unknown]
  - Stevens-Johnson syndrome [Not Recovered/Not Resolved]

NARRATIVE: CASE EVENT DATE: 201901
